FAERS Safety Report 8164541-6 (Version None)
Quarter: 2012Q1

REPORT INFORMATION
  Report Type: 
  Country: None (occurrence: None)
  Receive Date: 20120225
  Receipt Date: 20120215
  Transmission Date: 20120608
  Serious: Yes (Congenital Anomaly, Other)
  Sender: FDA-Public Use
  Company Number: DE-ACCORD-012458

PATIENT

DRUGS (4)
  1. TACROLIMUS [Concomitant]
     Route: 064
  2. MYCOPHENOLATE MOFETIL [Suspect]
     Indication: RENAL TRANSPLANT
     Route: 064
  3. PREDNISONE [Concomitant]
     Route: 064
  4. ACEBUTOLOL [Concomitant]
     Route: 064

REACTIONS (4)
  - FOETAL EXPOSURE TIMING UNSPECIFIED [None]
  - EXTERNAL AUDITORY CANAL ATRESIA [None]
  - CONGENITAL CYST [None]
  - MICROTIA [None]
